FAERS Safety Report 7279624-2 (Version None)
Quarter: 2011Q1

REPORT INFORMATION
  Report Type: 
  Country: None (occurrence: None)
  Receive Date: 20110208
  Receipt Date: 20110127
  Transmission Date: 20110831
  Serious: Yes (Other)
  Sender: FDA-Public Use
  Company Number: GB-TEVA-265902ISR

PATIENT
  Age: 8 Year

DRUGS (3)
  1. METHOTREXATE [Suspect]
  2. DEXAMETHASONE [Suspect]
  3. TRIAMCINOLONE [Suspect]
     Indication: IRIDOCYCLITIS

REACTIONS (2)
  - CUSHINGOID [None]
  - IRIDOCYCLITIS [None]
